FAERS Safety Report 19747137 (Version 1)
Quarter: 2021Q3

REPORT INFORMATION
  Report Type: Spontaneous
  Country: DE (occurrence: DE)
  Receive Date: 20210826
  Receipt Date: 20210826
  Transmission Date: 20211014
  Serious: Yes (Life-Threatening, Hospitalization)
  Sender: FDA-Public Use
  Company Number: NVSC2021DE191014

PATIENT
  Age: 72 Year
  Sex: Male

DRUGS (4)
  1. OXALIPLATIN. [Suspect]
     Active Substance: OXALIPLATIN
     Indication: HER2 POSITIVE GASTRIC CANCER
     Dosage: UNK (DOSE GIVEN ON 21/JUL/2016: 286.0 MG)
     Route: 065
     Dates: start: 20160630
  2. CISPLATIN. [Suspect]
     Active Substance: CISPLATIN
     Indication: HER2 POSITIVE GASTRIC CANCER
     Dosage: UNK (DATE OF MOST RECENT DOSE (176 MG)PRIOR TO SAE: 08/JUN/2016D1 IN 3 WEEKLY SCHEDULE)
     Route: 042
     Dates: start: 20160608, end: 20160630
  3. CAPECITABINE. [Suspect]
     Active Substance: CAPECITABINE
     Indication: HER2 POSITIVE GASTRIC CANCER
     Dosage: UNK (DATE OF MOST RECENT DOSE (4400 MG)PRIOR TO SAE: 04/AUG/2016D1?14 IN 3 WEEKLY SCHEDULE)
     Route: 048
     Dates: start: 20160608
  4. TRASTUZUMAB. [Suspect]
     Active Substance: TRASTUZUMAB
     Indication: HER2 POSITIVE GASTRIC CANCER
     Dosage: UNK (DATE OF MOST RECENT DOSE (636 MG) PRIOR TO SAE: 21/JUL/2016D1 IN 3 WEEKLY SCHEDULE)
     Route: 042
     Dates: start: 20160608

REACTIONS (2)
  - Anastomotic complication [Recovered/Resolved]
  - Sepsis [Recovered/Resolved with Sequelae]

NARRATIVE: CASE EVENT DATE: 20160917
